FAERS Safety Report 7338478-6 (Version None)
Quarter: 2011Q1

REPORT INFORMATION
  Report Type: 
  Country: None (occurrence: None)
  Receive Date: 20110308
  Receipt Date: 20110223
  Transmission Date: 20110831
  Serious: Yes (Hospitalization)
  Sender: FDA-Public Use
  Company Number: FR-ELI_LILLY_AND_COMPANY-FR201103001313

PATIENT
  Sex: Male

DRUGS (15)
  1. HEXAQUINE [Concomitant]
     Route: 048
  2. CYMBALTA [Suspect]
     Dosage: 60 MG, DAILY (1/D)
     Route: 048
     Dates: start: 20080228
  3. CYMBALTA [Suspect]
     Dosage: 30 MG, UNK
     Route: 048
     Dates: end: 20080326
  4. MONOCRIXO [Concomitant]
     Dosage: 200 MG, DAILY (1/D)
     Route: 048
     Dates: start: 20080201, end: 20080326
  5. TAKADOL [Concomitant]
  6. XANAX [Concomitant]
     Dosage: 10 MG, DAILY (1/D)
     Route: 048
     Dates: start: 20060101
  7. KETODERM [Concomitant]
     Route: 050
  8. LYRICA [Concomitant]
     Route: 048
     Dates: start: 20080201, end: 20080326
  9. RIVOTRIL [Concomitant]
     Route: 048
     Dates: start: 20080201, end: 20080326
  10. HAVLANE [Concomitant]
     Route: 048
  11. MOVICOL /01625101/ [Concomitant]
     Indication: PAIN
  12. DEBRIDAT [Concomitant]
     Dates: start: 20070801
  13. AVANDAMET [Concomitant]
     Route: 048
     Dates: start: 20100901
  14. CARBOSYMAG /FRA/ [Concomitant]
     Dates: start: 20070801
  15. EUPANTOL [Concomitant]
     Route: 048

REACTIONS (4)
  - EPIGASTRIC DISCOMFORT [None]
  - PRURITUS [None]
  - DYSPHONIA [None]
  - URTICARIA [None]
